FAERS Safety Report 9056642 (Version 3)
Quarter: 2013Q3

REPORT INFORMATION
  Report Type: Spontaneous
  Country: US (occurrence: US)
  Receive Date: 20130204
  Receipt Date: 20130903
  Transmission Date: 20140515
  Serious: Yes (Death, Hospitalization)
  Sender: FDA-Public Use
  Company Number: US-B.I. PHARMACEUTICALS,INC./RIDGEFIELD-2013-BI-02411BP

PATIENT
  Age: 82 Year
  Sex: Male
  Weight: 68.04 kg

DRUGS (8)
  1. PRADAXA [Suspect]
     Indication: ATRIAL FIBRILLATION
     Dosage: 300 MG
     Dates: start: 20101201, end: 20110125
  2. HYDROCHLOROTHIAZIDE [Concomitant]
     Dosage: 25 MG
  3. NIASPAN [Concomitant]
     Dosage: 1 G
  4. TAMSULOSIN [Concomitant]
     Indication: HYPERTENSION
     Dosage: 0.8 MG
  5. OMEPRAZOLE [Concomitant]
     Dosage: 20 MG
  6. BENAZEPRIL [Concomitant]
     Dosage: 20 MG
  7. FINASTERIDE [Concomitant]
     Dosage: 5 MG
  8. AMLODIPINE [Concomitant]

REACTIONS (2)
  - Haemorrhagic stroke [Fatal]
  - Cerebral haemorrhage [Unknown]
